FAERS Safety Report 25758861 (Version 3)
Quarter: 2025Q4

REPORT INFORMATION
  Report Type: Spontaneous
  Country: JP (occurrence: JP)
  Receive Date: 20250904
  Receipt Date: 20251105
  Transmission Date: 20260118
  Serious: Yes (Other)
  Sender: JOHNSON AND JOHNSON
  Company Number: JP-JNJFOC-20250715314

PATIENT
  Age: 6 Decade
  Sex: Female

DRUGS (6)
  1. RYBREVANT [Suspect]
     Active Substance: AMIVANTAMAB-VMJW
     Indication: EGFR gene mutation
     Route: 042
     Dates: start: 20250709, end: 20250709
  2. RYBREVANT [Suspect]
     Active Substance: AMIVANTAMAB-VMJW
     Dosage: DOSE UNKNOWN, CYCLE 2
     Route: 042
     Dates: start: 2025, end: 2025
  3. RYBREVANT [Suspect]
     Active Substance: AMIVANTAMAB-VMJW
     Dosage: DOSE UNKNOWN, CYCLE 3
     Route: 042
     Dates: start: 2025, end: 2025
  4. CARBOPLATIN [Suspect]
     Active Substance: CARBOPLATIN
     Indication: Product used for unknown indication
     Dosage: DOSE UNKNOWN
     Route: 042
  5. CARBOPLATIN [Suspect]
     Active Substance: CARBOPLATIN
     Dosage: DOSE UNKNOWN
     Route: 042
  6. PEMETREXED [Suspect]
     Active Substance: PEMETREXED
     Indication: Product used for unknown indication
     Dosage: DOSE UNKNOWN
     Route: 042

REACTIONS (5)
  - Myelosuppression [Recovered/Resolved]
  - Paronychia [Not Recovered/Not Resolved]
  - Vomiting [Not Recovered/Not Resolved]
  - Taste disorder [Unknown]
  - Infusion related reaction [Recovered/Resolved]

NARRATIVE: CASE EVENT DATE: 20250101
